FAERS Safety Report 24019493 (Version 1)
Quarter: 2024Q2

REPORT INFORMATION
  Report Type: Spontaneous
  Country: US (occurrence: None)
  Receive Date: 20240626
  Receipt Date: 20240626
  Transmission Date: 20240716
  Serious: Yes (Life-Threatening, Hospitalization)
  Sender: FDA-Public Use
  Company Number: None

PATIENT
  Age: 64 Year
  Sex: Female
  Weight: 74.8 kg

DRUGS (2)
  1. TENECTEPLASE [Suspect]
     Active Substance: TENECTEPLASE
     Indication: Cerebrovascular accident
     Dosage: OTHER FREQUENCY : ONCE;?
     Route: 040
     Dates: start: 20231102, end: 20231102
  2. Lisinopril 20 mg-Hydrochlorothiazide 25 mg [Concomitant]
     Dates: start: 20230703

REACTIONS (2)
  - Angioedema [None]
  - Hypertension [None]

NARRATIVE: CASE EVENT DATE: 20231102
